FAERS Safety Report 10199945 (Version 1)
Quarter: 2014Q2

REPORT INFORMATION
  Report Type: Spontaneous
  Country: IN (occurrence: IN)
  Receive Date: 20140527
  Receipt Date: 20140527
  Transmission Date: 20141212
  Serious: Yes (Other)
  Sender: FDA-Public Use
  Company Number: PHHY2014IN062044

PATIENT
  Age: 26 Year
  Sex: Male

DRUGS (4)
  1. CISPLATIN [Suspect]
     Indication: KERATINISING SQUAMOUS CELL CARCINOMA OF NASOPHARYNX
  2. 5-FLUOROURACIL [Suspect]
     Indication: KERATINISING SQUAMOUS CELL CARCINOMA OF NASOPHARYNX
  3. VINCRISTINE [Suspect]
     Indication: KERATINISING SQUAMOUS CELL CARCINOMA OF NASOPHARYNX
  4. RADIOTHERAPY [Suspect]
     Indication: KERATINISING SQUAMOUS CELL CARCINOMA OF NASOPHARYNX

REACTIONS (26)
  - Osteonecrosis [Unknown]
  - Dry mouth [Unknown]
  - Swelling face [Unknown]
  - Trismus [Unknown]
  - Muscle fibrosis [Unknown]
  - Bone development abnormal [Unknown]
  - Temporomandibular joint syndrome [Unknown]
  - Tooth malformation [Unknown]
  - Tooth hypoplasia [Unknown]
  - Pathological fracture [Unknown]
  - Oral cavity fistula [Unknown]
  - Fistula discharge [Unknown]
  - Burning mouth syndrome [Unknown]
  - Exposed bone in jaw [Unknown]
  - Mucosal necrosis [Unknown]
  - Mucosal ulceration [Unknown]
  - Malocclusion [Unknown]
  - Dental caries [Unknown]
  - Saliva altered [Unknown]
  - Dysbacteriosis [Unknown]
  - Oral pain [Unknown]
  - Salivary gland atrophy [Unknown]
  - Salivary gland disorder [Unknown]
  - Dyskinesia [Unknown]
  - Purulent discharge [Unknown]
  - Auricular swelling [Unknown]
